FAERS Safety Report 9849742 (Version 1)
Quarter: 2014Q1

REPORT INFORMATION
  Report Type: Spontaneous
  Country: US (occurrence: None)
  Receive Date: 20140124
  Receipt Date: 20140124
  Transmission Date: 20141002
  Serious: Yes (Other)
  Sender: FDA-Public Use
  Company Number: None

PATIENT
  Age: 22 Year
  Sex: Female
  Weight: 74.84 kg

DRUGS (1)
  1. CIPROFLOXACIN HYDROCHLORIDE [Suspect]
     Indication: CONJUNCTIVITIS
     Dosage: 2 DROPS FOUR TIMES DAILY INTO THE EYE
     Route: 047
     Dates: start: 20140120, end: 20140123

REACTIONS (1)
  - Vision blurred [None]
